FAERS Safety Report 19776073 (Version 4)
Quarter: 2021Q4

REPORT INFORMATION
  Report Type: Other
  Country: AR (occurrence: AR)
  Receive Date: 20210901
  Receipt Date: 20211220
  Transmission Date: 20220303
  Serious: Yes (Hospitalization, Other)
  Sender: FDA-Public Use
  Company Number: AR-002147023-PHHY2012AR046117

PATIENT
  Age: 62 Year
  Sex: Female

DRUGS (12)
  1. XOLAIR [Suspect]
     Active Substance: OMALIZUMAB
     Indication: Asthma
     Dosage: 2 DF, 2 AMPOULES PER MONTH
     Route: 058
     Dates: start: 2011
  2. XOLAIR [Suspect]
     Active Substance: OMALIZUMAB
     Route: 058
     Dates: start: 20120318
  3. XOLAIR [Suspect]
     Active Substance: OMALIZUMAB
     Route: 065
     Dates: end: 202003
  4. XOLAIR [Suspect]
     Active Substance: OMALIZUMAB
     Dosage: (STARTED 3 MONTH AGO)
     Route: 065
  5. BENADRYL [Concomitant]
     Active Substance: DIPHENHYDRAMINE HYDROCHLORIDE
     Indication: Product used for unknown indication
     Dosage: UNK
     Route: 065
  6. SERETIDE [Concomitant]
     Active Substance: FLUTICASONE PROPIONATE\SALMETEROL XINAFOATE
     Indication: Product used for unknown indication
     Route: 065
  7. ATACAND [Concomitant]
     Active Substance: CANDESARTAN CILEXETIL
     Indication: Prophylaxis
     Dosage: (1/4 OF 16 MG), QD
     Route: 065
  8. CORTISONE [Concomitant]
     Active Substance: CORTISONE
     Indication: Product used for unknown indication
     Dosage: 1 DF, 3 DAYS
     Route: 065
  9. CORTISONE [Concomitant]
     Active Substance: CORTISONE
     Dosage: HALF TABLET, 3 DAYS
     Route: 065
  10. CORTISONE [Concomitant]
     Active Substance: CORTISONE
     Dosage: 1/4 TABLET 3 DAYS
     Route: 065
  11. BROMAZEPAM [Concomitant]
     Active Substance: BROMAZEPAM
     Indication: Anxiety
     Dosage: 6 MG (1/4 IN THE MORNING)
     Route: 065
  12. TAFIROL [Concomitant]
     Indication: Pain
     Dosage: 1 G (HALF TABLET)
     Route: 065

REACTIONS (25)
  - Chronic obstructive pulmonary disease [Recovering/Resolving]
  - Bronchitis [Not Recovered/Not Resolved]
  - Choking [Unknown]
  - Pneumonia [Not Recovered/Not Resolved]
  - Hypoxia [Unknown]
  - Lung neoplasm malignant [Unknown]
  - Skin discolouration [Recovering/Resolving]
  - Lung disorder [Not Recovered/Not Resolved]
  - Abdominal distension [Recovering/Resolving]
  - Gastrooesophageal reflux disease [Not Recovered/Not Resolved]
  - Rosacea [Recovering/Resolving]
  - Insomnia [Unknown]
  - Anaemia [Not Recovered/Not Resolved]
  - Sneezing [Not Recovered/Not Resolved]
  - Hypersensitivity [Not Recovered/Not Resolved]
  - Snoring [Not Recovered/Not Resolved]
  - Bronchial secretion retention [Not Recovered/Not Resolved]
  - Fear [Unknown]
  - Diverticulum [Unknown]
  - Faeces discoloured [Unknown]
  - Decreased immune responsiveness [Unknown]
  - Blood pressure increased [Recovered/Resolved]
  - Cough [Recovering/Resolving]
  - Bronchospasm [Recovering/Resolving]
  - Productive cough [Not Recovered/Not Resolved]

NARRATIVE: CASE EVENT DATE: 20120501
